FAERS Safety Report 10969740 (Version 2)
Quarter: 2015Q1

REPORT INFORMATION
  Report Type: Spontaneous
  Country: US (occurrence: None)
  Receive Date: 20150226
  Receipt Date: 20150226
  Transmission Date: 20150721
  Serious: No
  Sender: FDA-Public Use
  Company Number: TPA2009A03779

PATIENT
  Age: 75 Year
  Sex: Male

DRUGS (2)
  1. INDOCIN [Suspect]
     Active Substance: INDOMETHACIN\INDOMETHACIN SODIUM
     Dates: end: 200910
  2. ULORIC [Suspect]
     Active Substance: FEBUXOSTAT
     Indication: GOUTY TOPHUS
     Route: 048
     Dates: start: 20090327

REACTIONS (2)
  - Creatinine renal clearance increased [None]
  - Blood creatinine increased [None]

NARRATIVE: CASE EVENT DATE: 20091016
